FAERS Safety Report 10407075 (Version 3)
Quarter: 2014Q4

REPORT INFORMATION
  Report Type: Spontaneous
  Country: US (occurrence: US)
  Receive Date: 20140825
  Receipt Date: 20141119
  Transmission Date: 20150528
  Serious: Yes (Hospitalization, Other)
  Sender: FDA-Public Use
  Company Number: US-GLAXOSMITHKLINE-A1084729A

PATIENT
  Age: 79 Year
  Sex: Female

DRUGS (3)
  1. WARFARIN [Concomitant]
     Active Substance: WARFARIN
  2. VOTRIENT [Suspect]
     Active Substance: PAZOPANIB HYDROCHLORIDE
     Indication: RENAL CELL CARCINOMA
     Dosage: 800 MG, 1D
     Route: 048
     Dates: start: 20140728, end: 201408
  3. INSULIN [Concomitant]
     Active Substance: INSULIN NOS

REACTIONS (7)
  - Hospitalisation [Unknown]
  - Fall [Unknown]
  - Micturition frequency decreased [Recovered/Resolved]
  - Fatigue [Recovered/Resolved]
  - Diarrhoea [Recovered/Resolved]
  - Diabetic coma [Recovered/Resolved]
  - Back injury [Unknown]

NARRATIVE: CASE EVENT DATE: 201408
